FAERS Safety Report 12826593 (Version 1)
Quarter: 2016Q4

REPORT INFORMATION
  Report Type: Spontaneous
  Country: US (occurrence: US)
  Receive Date: 20161006
  Receipt Date: 20161006
  Transmission Date: 20170207
  Serious: No
  Sender: FDA-Public Use
  Company Number: US-JAZZ-2016-US-012834

PATIENT
  Sex: Male

DRUGS (22)
  1. XYREM [Suspect]
     Active Substance: SODIUM OXYBATE
     Dosage: DOSE ADJUSTMENTS
     Route: 048
     Dates: start: 201510, end: 201511
  2. PROVIGIL [Concomitant]
     Active Substance: MODAFINIL
  3. MORPHINE SULFATE. [Concomitant]
     Active Substance: MORPHINE SULFATE
  4. ALLEGRA ALLERGY [Concomitant]
     Active Substance: FEXOFENADINE HYDROCHLORIDE
  5. NASONEX [Concomitant]
     Active Substance: MOMETASONE FUROATE
  6. XYREM [Suspect]
     Active Substance: SODIUM OXYBATE
     Dosage: 4.5 G, BID
     Route: 048
     Dates: start: 201511
  7. MULTIVITAMINS [Concomitant]
     Active Substance: VITAMINS
  8. LOVASTATIN. [Concomitant]
     Active Substance: LOVASTATIN
  9. ASPIRIN. [Concomitant]
     Active Substance: ASPIRIN
  10. MELOXICAM. [Concomitant]
     Active Substance: MELOXICAM
  11. MIRTAZAPINE. [Concomitant]
     Active Substance: MIRTAZAPINE
  12. GABAPENTIN. [Concomitant]
     Active Substance: GABAPENTIN
  13. XYREM [Suspect]
     Active Substance: SODIUM OXYBATE
     Indication: NARCOLEPSY
     Dosage: 2.25 G, BID
     Route: 048
     Dates: start: 201510, end: 201510
  14. ASMANEX [Concomitant]
     Active Substance: MOMETASONE FUROATE
  15. FINASTERIDE. [Concomitant]
     Active Substance: FINASTERIDE
  16. NUVIGIL [Concomitant]
     Active Substance: ARMODAFINIL
  17. PROAIR HFA [Concomitant]
     Active Substance: ALBUTEROL SULFATE
  18. VITAMIN D [Concomitant]
     Active Substance: CHOLECALCIFEROL
  19. FOLIC ACID. [Concomitant]
     Active Substance: FOLIC ACID
  20. BACLOFEN. [Concomitant]
     Active Substance: BACLOFEN
  21. LUNESTA [Concomitant]
     Active Substance: ESZOPICLONE
  22. OXYCODONE [Concomitant]
     Active Substance: OXYCODONE

REACTIONS (4)
  - Psychomotor hyperactivity [Unknown]
  - Depression [Not Recovered/Not Resolved]
  - Injury [Unknown]
  - Sciatica [Not Recovered/Not Resolved]
